FAERS Safety Report 21635317 (Version 2)
Quarter: 2022Q4

REPORT INFORMATION
  Report Type: Spontaneous
  Country: CA (occurrence: CA)
  Receive Date: 20221123
  Receipt Date: 20221219
  Transmission Date: 20230112
  Serious: Yes (Other)
  Sender: FDA-Public Use
  Company Number: CA-AMERICAN REGENT INC-2022003380

PATIENT
  Age: 37 Year
  Sex: Female

DRUGS (3)
  1. VENOFER [Suspect]
     Active Substance: IRON SUCROSE
     Indication: Iron deficiency anaemia
     Dosage: 300 MILLIGRAM ONCE, INFUSED AT A RATE OF 145 ML/HR OVER 2 HRS
     Route: 042
     Dates: start: 20220719, end: 20220719
  2. BENADRYL [Concomitant]
     Active Substance: DIPHENHYDRAMINE HYDROCHLORIDE
     Indication: Premedication
     Dosage: 25 MILLIGRAM
     Route: 048
     Dates: start: 20220719, end: 20220719
  3. HYDROCORTISONE [Concomitant]
     Active Substance: HYDROCORTISONE
     Indication: Premedication
     Dosage: 100 MILLIGRAM
     Route: 042
     Dates: start: 20220719, end: 20220719

REACTIONS (15)
  - Burning sensation [Recovered/Resolved]
  - Capillary nail refill test abnormal [Recovered/Resolved]
  - Fluid replacement [Recovered/Resolved]
  - Nodule [Recovered/Resolved]
  - Pallor [Recovered/Resolved]
  - Oxygen therapy [Recovered/Resolved]
  - Pulse abnormal [Recovered/Resolved]
  - Restlessness [Recovered/Resolved]
  - Unresponsive to stimuli [Recovered/Resolved]
  - Erythema [Recovered/Resolved]
  - Malaise [Recovered/Resolved]
  - Heart rate decreased [Recovered/Resolved]
  - Nausea [Recovered/Resolved]
  - Blood pressure systolic decreased [Recovered/Resolved]
  - Incorrect product administration duration [Unknown]

NARRATIVE: CASE EVENT DATE: 20220719
